FAERS Safety Report 7668154-1 (Version None)
Quarter: 2011Q3

REPORT INFORMATION
  Report Type: 
  Country: None (occurrence: None)
  Receive Date: 20110808
  Receipt Date: 20110802
  Transmission Date: 20111222
  Serious: Yes (Hospitalization, Other)
  Sender: FDA-Public Use
  Company Number: JP-PFIZER INC-2011130275

PATIENT
  Age: 54 Year
  Sex: Female
  Weight: 28.7 kg

DRUGS (8)
  1. UNASYN ORAL TABLET [Concomitant]
     Indication: ANTIBIOTIC THERAPY
     Dosage: 375 MG, 3X/DAY
     Route: 048
     Dates: start: 20110502, end: 20110514
  2. MUCODYNE [Concomitant]
     Indication: PROPHYLAXIS
     Dosage: 500 MG, 3X/DAY
     Route: 048
     Dates: start: 20110512, end: 20110514
  3. XYZAL [Concomitant]
     Indication: ANTIALLERGIC THERAPY
     Dosage: 5 MG, 1X/DAY
     Route: 048
     Dates: start: 20110512, end: 20110514
  4. ACETAMINOPHEN [Concomitant]
     Indication: ANTIPYRESIS
     Dosage: 400 MG, AS NEEDED
     Route: 048
     Dates: start: 20110512, end: 20110514
  5. VFEND [Suspect]
     Indication: ANTIFUNGAL TREATMENT
     Dosage: 100 MG, 2X/DAY
     Route: 048
     Dates: start: 20110406, end: 20110524
  6. APLACE [Concomitant]
     Indication: PROPHYLAXIS
     Dosage: 100 MG, 2X/DAY
     Route: 048
     Dates: start: 20110405, end: 20110528
  7. VFEND [Suspect]
     Indication: BRONCHOPULMONARY ASPERGILLOSIS
     Dosage: 150 MG, 2X/DAY
     Route: 048
     Dates: start: 20110405, end: 20110405
  8. NEW LULU A [Concomitant]
     Indication: ANTIPYRESIS
     Dosage: 1 DF, 3X/DAY
     Dates: start: 20110511, end: 20110512

REACTIONS (4)
  - LIVER FUNCTION TEST ABNORMAL [None]
  - GENERALISED ERYTHEMA [None]
  - SKIN EXFOLIATION [None]
  - RASH GENERALISED [None]
